FAERS Safety Report 7289589-5 (Version None)
Quarter: 2011Q1

REPORT INFORMATION
  Report Type: 
  Country: None (occurrence: None)
  Receive Date: 20110125
  Receipt Date: 20110106
  Transmission Date: 20110831
  Serious: Yes (Hospitalization, Other)
  Sender: FDA-Public Use
  Company Number: 2010P1002144

PATIENT
  Age: 31 Year
  Sex: Female

DRUGS (3)
  1. PREV MEDS [Concomitant]
  2. ZOLOFT [Concomitant]
  3. CARBAMAZEPINE [Suspect]
     Indication: BIPOLAR DISORDER
     Dosage: 200 MG;BID;PO
     Route: 048
     Dates: start: 20081029, end: 20091229

REACTIONS (48)
  - DIARRHOEA [None]
  - ANAPHYLACTIC REACTION [None]
  - STOMATITIS [None]
  - VULVOVAGINAL DISCOMFORT [None]
  - SERRATIA TEST POSITIVE [None]
  - VAGINAL HAEMORRHAGE [None]
  - AMENORRHOEA [None]
  - HEADACHE [None]
  - DERMATITIS ALLERGIC [None]
  - ALANINE AMINOTRANSFERASE INCREASED [None]
  - LYMPHANGITIS [None]
  - LYMPHADENOPATHY [None]
  - MITRAL VALVE INCOMPETENCE [None]
  - SKIN ULCER [None]
  - VOMITING [None]
  - EAR PAIN [None]
  - ABDOMINAL PAIN [None]
  - URTICARIA [None]
  - BRONCHITIS [None]
  - ANXIETY [None]
  - ASPARTATE AMINOTRANSFERASE INCREASED [None]
  - EOSINOPHILIA [None]
  - ANTIBIOTIC RESISTANT STAPHYLOCOCCUS TEST POSITIVE [None]
  - THROMBOCYTOPENIA [None]
  - WEIGHT INCREASED [None]
  - DEPRESSION [None]
  - CHALAZION [None]
  - TRICUSPID VALVE INCOMPETENCE [None]
  - ARTHROPOD BITE [None]
  - NAUSEA [None]
  - PNEUMONIA [None]
  - CANDIDA TEST POSITIVE [None]
  - SPUTUM CULTURE POSITIVE [None]
  - KLEBSIELLA TEST POSITIVE [None]
  - BLOOD THYROID STIMULATING HORMONE INCREASED [None]
  - HYPERKERATOSIS [None]
  - PHOTOPHOBIA [None]
  - UPPER RESPIRATORY TRACT INFECTION [None]
  - DRUG RASH WITH EOSINOPHILIA AND SYSTEMIC SYMPTOMS [None]
  - THROMBOPHLEBITIS [None]
  - PULMONARY HYPERTENSION [None]
  - VENTRICULAR TACHYCARDIA [None]
  - MUSCLE SPASMS [None]
  - SINUSITIS [None]
  - HYPERSENSITIVITY [None]
  - BIPOLAR DISORDER [None]
  - BLOOD ALKALINE PHOSPHATASE INCREASED [None]
  - STEVENS-JOHNSON SYNDROME [None]
